FAERS Safety Report 16159195 (Version 1)
Quarter: 2019Q2

REPORT INFORMATION
  Report Type: Spontaneous
  Country: US (occurrence: US)
  Receive Date: 20190404
  Receipt Date: 20190404
  Transmission Date: 20190711
  Serious: No
  Sender: FDA-Public Use
  Company Number: US-ELI_LILLY_AND_COMPANY-US201903011611

PATIENT
  Sex: Male

DRUGS (1)
  1. ERBITUX [Suspect]
     Active Substance: CETUXIMAB
     Indication: RECTAL CANCER STAGE IV
     Dosage: 1180 MG, UNKNOWN
     Route: 065

REACTIONS (3)
  - Pruritus [Unknown]
  - Rash [Recovered/Resolved]
  - Urticaria [Recovered/Resolved]
